FAERS Safety Report 6273044-5 (Version None)
Quarter: 2009Q3

REPORT INFORMATION
  Report Type: 
  Country: None (occurrence: None)
  Receive Date: 20090715
  Receipt Date: 20090715
  Transmission Date: 20100115
  Serious: No
  Sender: FDA-Public Use
  Company Number: None

PATIENT
  Age: 33 Year
  Sex: Male
  Weight: 74.8435 kg

DRUGS (2)
  1. ZICAM NASAL GEL MATRIXX [Suspect]
     Indication: NASOPHARYNGITIS
     Dosage: 1 SPRAY PER NOSTREL 3X/DAY NASAL 3+ YEARS
     Route: 045
  2. ZICAM NASAL GEL MATRIXX [Suspect]
     Indication: PROPHYLAXIS
     Dosage: 1 SPRAY PER NOSTREL 3X/DAY NASAL 3+ YEARS
     Route: 045

REACTIONS (3)
  - ANOSMIA [None]
  - NASAL DISCOMFORT [None]
  - RHINALGIA [None]
